FAERS Safety Report 14255157 (Version 1)
Quarter: 2017Q4

REPORT INFORMATION
  Report Type: Spontaneous
  Country: CN (occurrence: CN)
  Receive Date: 20171206
  Receipt Date: 20171206
  Transmission Date: 20180321
  Serious: Yes (Life-Threatening)
  Sender: FDA-Public Use
  Company Number: CN-GLAXOSMITHKLINE-CN2017GSK186553

PATIENT
  Age: 23 Year
  Sex: Male
  Weight: 140 kg

DRUGS (1)
  1. BACTROBAN [Suspect]
     Active Substance: MUPIROCIN\MUPIROCIN CALCIUM
     Indication: SKIN BACTERIAL INFECTION
     Dosage: 0.1 G, QD
     Route: 061
     Dates: start: 20171020, end: 20171020

REACTIONS (3)
  - Dyspnoea [Recovering/Resolving]
  - Pallor [Recovering/Resolving]
  - Chest discomfort [Recovering/Resolving]

NARRATIVE: CASE EVENT DATE: 20171020
